FAERS Safety Report 8602544 (Version 7)
Quarter: 2013Q3

REPORT INFORMATION
  Report Type: Report from Study
  Country: DE (occurrence: DE)
  Receive Date: 20120607
  Receipt Date: 20130825
  Transmission Date: 20140515
  Serious: Yes (Hospitalization)
  Sender: FDA-Public Use
  Company Number: DE-UCBSA-058575

PATIENT
  Age: 61 Year
  Sex: Female

DRUGS (13)
  1. CIMZIA [Suspect]
     Indication: RHEUMATOID ARTHRITIS
     Route: 058
     Dates: start: 201201, end: 201205
  2. ABATACEPT [Suspect]
     Dosage: 750 MG
     Dates: start: 200909, end: 201003
  3. RITUXIMAB [Suspect]
     Dosage: RECEIVED THERAPY 1000 MG ON 07-JAN-2008 AND ALSO ON 16-JUN-2008
     Dates: start: 20080107
  4. METHOTREXATE [Suspect]
     Indication: RHEUMATOID ARTHRITIS
     Dosage: 15.0 MG
  5. METHOTREXATE [Suspect]
     Indication: RHEUMATOID ARTHRITIS
     Route: 048
     Dates: start: 200804, end: 200911
  6. METHOTREXATE [Suspect]
     Indication: RHEUMATOID ARTHRITIS
     Dates: start: 200801, end: 200803
  7. TOCILIZUMAB [Suspect]
     Dosage: 640 MG
     Dates: start: 201004, end: 201011
  8. GOLIMUMAB [Suspect]
     Dosage: 50 MG
     Dates: start: 201011, end: 201102
  9. OMEPRAZOL [Concomitant]
     Indication: RHEUMATOID ARTHRITIS
     Dates: start: 20100209
  10. ARCOXIA [Concomitant]
     Indication: RHEUMATOID ARTHRITIS
     Dates: start: 20110202
  11. LODOTRA [Concomitant]
     Indication: RHEUMATOID ARTHRITIS
     Dates: start: 20110824
  12. EUTHYROX [Concomitant]
     Indication: PROPHYLAXIS
     Dosage: 150 ?G/DAY
  13. METFORMIN [Concomitant]

REACTIONS (1)
  - Papillary thyroid cancer [Recovered/Resolved]
